FAERS Safety Report 9882823 (Version 1)
Quarter: 2014Q1

REPORT INFORMATION
  Report Type: Spontaneous
  Country: US (occurrence: US)
  Receive Date: 20140207
  Receipt Date: 20140207
  Transmission Date: 20141002
  Serious: No
  Sender: FDA-Public Use
  Company Number: US-GILEAD-2014-0094069

PATIENT
  Age: 77 Year
  Sex: Female

DRUGS (11)
  1. LETAIRIS [Suspect]
     Indication: PULMONARY ARTERIAL HYPERTENSION
     Dosage: 5 MG, QD
     Route: 048
     Dates: start: 20120326
  2. REVATIO [Concomitant]
  3. WARFARIN [Concomitant]
  4. LEVOXYL [Concomitant]
  5. PANTOPRAZOLE [Concomitant]
  6. METOPROLOL [Concomitant]
  7. SIMVASTATIN [Concomitant]
  8. CLONIDINE [Concomitant]
  9. FLECAINIDE [Concomitant]
  10. LASIX                              /00032601/ [Concomitant]
  11. POTASSIUM [Concomitant]

REACTIONS (1)
  - Local swelling [Recovered/Resolved]
